FAERS Safety Report 10344673 (Version 1)
Quarter: 2014Q3

REPORT INFORMATION
  Report Type: Spontaneous
  Country: US (occurrence: US)
  Receive Date: 20140728
  Receipt Date: 20140728
  Transmission Date: 20150326
  Serious: Yes (Death)
  Sender: FDA-Public Use
  Company Number: US-ELI_LILLY_AND_COMPANY-US201407008694

PATIENT

DRUGS (5)
  1. CARBOPLATIN. [Concomitant]
     Active Substance: CARBOPLATIN
     Indication: GERM CELL CANCER
  2. GEMCITABINE HYDROCHLORIDE. [Suspect]
     Active Substance: GEMCITABINE HYDROCHLORIDE
     Indication: GERM CELL CANCER
     Route: 042
  3. BEVACIZUMAB [Concomitant]
     Active Substance: BEVACIZUMAB
     Indication: GERM CELL CANCER
  4. MELPHALAN [Concomitant]
     Active Substance: MELPHALAN
     Indication: GERM CELL CANCER
  5. DOCETAXEL [Concomitant]
     Active Substance: DOCETAXEL
     Indication: GERM CELL CANCER

REACTIONS (1)
  - Sepsis [Fatal]
